FAERS Safety Report 12538329 (Version 2)
Quarter: 2016Q3

REPORT INFORMATION
  Report Type: Spontaneous
  Country: IT (occurrence: IT)
  Receive Date: 20160707
  Receipt Date: 20160729
  Transmission Date: 20161109
  Serious: Yes (Other)
  Sender: FDA-Public Use
  Company Number: IT-GILEAD-2016-0222112

PATIENT
  Age: 80 Year
  Sex: Male
  Weight: 64 kg

DRUGS (1)
  1. HARVONI [Suspect]
     Active Substance: LEDIPASVIR\SOFOSBUVIR
     Indication: CHRONIC HEPATITIS C
     Dosage: 1 DF, QD
     Route: 048
     Dates: start: 20150710, end: 20151224

REACTIONS (3)
  - Hepatocellular carcinoma [Recovered/Resolved]
  - Hepatic lesion [Recovered/Resolved]
  - Hepatic cancer [Recovered/Resolved]

NARRATIVE: CASE EVENT DATE: 20160226
